FAERS Safety Report 16333840 (Version 1)
Quarter: 2019Q2

REPORT INFORMATION
  Report Type: Spontaneous
  Country: US (occurrence: US)
  Receive Date: 20190520
  Receipt Date: 20190520
  Transmission Date: 20190711
  Serious: Yes (Other)
  Sender: FDA-Public Use
  Company Number: US-COOPERSURGICAL, INC.-US-2019CPS001475

PATIENT
  Age: 29 Year
  Sex: Female
  Weight: 66.21 kg

DRUGS (1)
  1. PARAGARD T 380A [Suspect]
     Active Substance: COPPER
     Indication: CONTRACEPTION
     Dosage: UNK
     Route: 015
     Dates: start: 20140701

REACTIONS (7)
  - Foreign body in urogenital tract [Not Recovered/Not Resolved]
  - Sensation of foreign body [Unknown]
  - Cervical cyst [Unknown]
  - Pain [Unknown]
  - Complication of device removal [Not Recovered/Not Resolved]
  - Urinary tract infection [Unknown]
  - Device breakage [Not Recovered/Not Resolved]

NARRATIVE: CASE EVENT DATE: 20190507
